FAERS Safety Report 17010430 (Version 1)
Quarter: 2019Q4

REPORT INFORMATION
  Report Type: Spontaneous
  Country: SE (occurrence: SE)
  Receive Date: 20191108
  Receipt Date: 20191108
  Transmission Date: 20200122
  Serious: Yes (Other)
  Sender: FDA-Public Use
  Company Number: SE-MYLANLABS-2019M1106496

PATIENT
  Age: 45 Year
  Sex: Female
  Weight: 85 kg

DRUGS (1)
  1. DESLORATADINE. [Suspect]
     Active Substance: DESLORATADINE
     Indication: SEASONAL ALLERGY
     Dosage: UNK
     Dates: start: 20190415, end: 20190515

REACTIONS (2)
  - Headache [Not Recovered/Not Resolved]
  - Heart rate irregular [Not Recovered/Not Resolved]

NARRATIVE: CASE EVENT DATE: 20190505
